FAERS Safety Report 10215171 (Version 1)
Quarter: 2014Q2

REPORT INFORMATION
  Report Type: Spontaneous
  Country: US (occurrence: US)
  Receive Date: 20140603
  Receipt Date: 20140603
  Transmission Date: 20141212
  Serious: Yes (Other)
  Sender: FDA-Public Use
  Company Number: GXBR2014US001376

PATIENT
  Sex: 0

DRUGS (1)
  1. ENOXAPARIN SODIUM [Suspect]
     Dosage: 3 DOSES (DETAILS NOT PROVIDED)

REACTIONS (1)
  - Drug-induced liver injury [Unknown]
